FAERS Safety Report 12045415 (Version 2)
Quarter: 2016Q2

REPORT INFORMATION
  Report Type: Spontaneous
  Country: CH (occurrence: CH)
  Receive Date: 20160208
  Receipt Date: 20160405
  Transmission Date: 20160815
  Serious: Yes (Life-Threatening, Hospitalization)
  Sender: FDA-Public Use
  Company Number: CH-TEVA-630472ISR

PATIENT
  Age: 70 Year
  Sex: Male

DRUGS (8)
  1. CO AMOXICILLIN [Suspect]
     Active Substance: AMOXICILLIN
     Indication: PNEUMONIA
     Dosage: 6.6 GRAM DAILY; UNKNOWN STRENGTH
     Route: 042
     Dates: start: 20151214, end: 20151216
  2. VENTOLIN [Concomitant]
     Active Substance: ALBUTEROL SULFATE
     Dosage: UNKNOWN STRENGTH
     Route: 055
  3. ATROVENT [Concomitant]
     Active Substance: IPRATROPIUM BROMIDE
     Dosage: UNKNOWN STRENGTH
     Route: 055
  4. SOLU-MEDROL [Concomitant]
     Active Substance: METHYLPREDNISOLONE SODIUM SUCCINATE
     Dosage: UNKNOWN STRENGTH
     Route: 042
  5. CO AMOXICILLIN [Suspect]
     Active Substance: AMOXICILLIN
     Dosage: 1000 MILLIGRAM DAILY; REDUCED THAN INITIAL DOSE, UNKNOWN STRENGTH
     Route: 048
     Dates: start: 20151216
  6. PRADIF [Concomitant]
     Active Substance: TAMSULOSIN HYDROCHLORIDE
     Dosage: UNKNOWN STRENGTH
     Route: 048
  7. KLACID [Suspect]
     Active Substance: CLARITHROMYCIN
     Indication: PNEUMONIA
     Dosage: 1000 MILLIGRAM DAILY; UNKNOWN STRENGTH
     Route: 048
     Dates: start: 20151214, end: 20151216
  8. SYMBICORT [Concomitant]
     Active Substance: BUDESONIDE\FORMOTEROL FUMARATE DIHYDRATE
     Dosage: UNKNOWN STRENGTH
     Route: 055

REACTIONS (4)
  - Acute kidney injury [Not Recovered/Not Resolved]
  - Syncope [Recovering/Resolving]
  - Autoimmune haemolytic anaemia [Not Recovered/Not Resolved]
  - Jaundice [Unknown]

NARRATIVE: CASE EVENT DATE: 20151216
